FAERS Safety Report 8041172-X (Version None)
Quarter: 2012Q1

REPORT INFORMATION
  Report Type: 
  Country: None (occurrence: None)
  Receive Date: 20120112
  Receipt Date: 20120105
  Transmission Date: 20120608
  Serious: Yes (Death, Hospitalization, Other)
  Sender: FDA-Public Use
  Company Number: GR-BRISTOL-MYERS SQUIBB COMPANY-16337156

PATIENT
  Age: 78 Year
  Sex: Female

DRUGS (6)
  1. GLUCOPHAGE [Suspect]
     Indication: DIABETES MELLITUS
     Dosage: 3DF= 1DF, 1 IN 8 HR
     Route: 048
     Dates: end: 20110428
  2. BETAHISTINE MESYLATE [Concomitant]
     Indication: VERTIGO
     Dosage: 2DF= 2 IN  1 D
     Route: 048
     Dates: end: 20110428
  3. DIAMICRON [Concomitant]
     Indication: DIABETES MELLITUS
     Dosage: TABS
     Route: 048
     Dates: start: 20110427
  4. SALOSPIR [Concomitant]
     Indication: CEREBROVASCULAR ACCIDENT
     Route: 048
     Dates: start: 20110428
  5. NOOTROP [Concomitant]
     Indication: CEREBROVASCULAR ACCIDENT
     Route: 048
     Dates: end: 20110428
  6. TOLTERODINE TARTRATE [Concomitant]
     Indication: URINARY INCONTINENCE
     Dosage: 2DF= 2 IN 1 D
     Route: 048
     Dates: end: 20110428

REACTIONS (6)
  - HYPOGLYCAEMIA [None]
  - VOMITING [None]
  - COMA [None]
  - DIARRHOEA [None]
  - LACTIC ACIDOSIS [None]
  - DEPRESSED LEVEL OF CONSCIOUSNESS [None]
